FAERS Safety Report 5870424-4 (Version None)
Quarter: 2008Q3

REPORT INFORMATION
  Report Type: 
  Country: None (occurrence: None)
  Receive Date: 20080829
  Receipt Date: 20080424
  Transmission Date: 20090109
  Serious: No
  Sender: FDA-Public Use
  Company Number: US023357

PATIENT

DRUGS (2)
  1. FENTORA [Suspect]
     Indication: PAIN
     Dosage: 400 UG FIVE TIMES A DAY BUCCAL
     Route: 002
  2. FENTANYL TRANSDERMAL SYSTEM [Concomitant]

REACTIONS (1)
  - DRUG PRESCRIBING ERROR [None]
